FAERS Safety Report 9455918 (Version 2)
Quarter: 2013Q3

REPORT INFORMATION
  Report Type: Spontaneous
  Country: JP (occurrence: JP)
  Receive Date: 20130813
  Receipt Date: 20130916
  Transmission Date: 20140515
  Serious: Yes (Other)
  Sender: FDA-Public Use
  Company Number: JP-VERTEX PHARMACEUTICALS INC-2013-008727

PATIENT
  Age: 63 Year
  Sex: Male

DRUGS (13)
  1. TELAVIC [Suspect]
     Indication: CHRONIC HEPATITIS C
     Dosage: 1500 MG, UNK
     Route: 048
     Dates: start: 20120830, end: 20120920
  2. TELAVIC [Suspect]
     Dosage: 1500 MG, UNK
     Route: 048
     Dates: start: 20120927, end: 20121024
  3. TELAVIC [Suspect]
     Dosage: 1500 MG, UNK
     Route: 048
     Dates: start: 20121101
  4. PEGINTERFERON ALFA-2B [Suspect]
     Indication: CHRONIC HEPATITIS C
     Dosage: 80 UNK, QW
     Route: 058
     Dates: start: 20120830, end: 20120920
  5. PEGINTERFERON ALFA-2B [Suspect]
     Dosage: 80 UNK, QW
     Route: 058
     Dates: start: 20120927, end: 20121017
  6. PEGINTERFERON ALFA-2B [Suspect]
     Dosage: 40 UNK, QW
     Route: 058
     Dates: start: 20121018, end: 20121024
  7. PEGINTERFERON ALFA-2B [Suspect]
     Dosage: 40 UNK, QW
     Route: 058
     Dates: start: 20121101
  8. RIBAVIRIN [Suspect]
     Indication: CHRONIC HEPATITIS C
     Dosage: 600 MG, UNK
     Route: 048
     Dates: start: 20120830, end: 20121024
  9. RIBAVIRIN [Suspect]
     Dosage: 200 MG, UNK
     Route: 048
     Dates: start: 20121101, end: 20121107
  10. RIBAVIRIN [Suspect]
     Dosage: 400 MG, UNK
     Route: 048
     Dates: start: 20121108, end: 20120821
  11. RIBAVIRIN [Suspect]
     Dosage: 600 MG, UNK
     Route: 048
     Dates: start: 20121122
  12. MYSER [Suspect]
     Indication: ERYTHEMA
     Route: 003
  13. TALION [Suspect]
     Indication: ERYTHEMA
     Route: 048

REACTIONS (5)
  - Pancytopenia [Unknown]
  - Hypokalaemia [Unknown]
  - Blood potassium decreased [Recovered/Resolved]
  - Blood potassium decreased [Recovered/Resolved]
  - Erythema [Unknown]
